FAERS Safety Report 9817164 (Version 1)
Quarter: 2014Q1

REPORT INFORMATION
  Report Type: Spontaneous
  Country: US (occurrence: US)
  Receive Date: 20140114
  Receipt Date: 20140114
  Transmission Date: 20141002
  Serious: No
  Sender: FDA-Public Use
  Company Number: US-BAUSCH-BL-2013-006434

PATIENT
  Age: 52 Year
  Sex: Female

DRUGS (2)
  1. TOBRAMYCIN OPHTHALMIC SOLUTION USP 0.3% [Suspect]
     Indication: EYE PRURITUS
     Dosage: 2 DROPS IN LEFT EYE, THREE TIMES PER DAY
     Route: 047
     Dates: start: 20131109, end: 20131118
  2. TOBRAMYCIN OPHTHALMIC SOLUTION USP 0.3% [Suspect]
     Indication: EYE DISCHARGE
     Dosage: 2 DROPS IN RIGHT EYE, THREE TIMES PER DAY
     Route: 047
     Dates: start: 20131109, end: 20131118

REACTIONS (6)
  - Off label use [Recovered/Resolved]
  - Eye irritation [Recovered/Resolved]
  - Eye pain [Recovered/Resolved]
  - Ocular hyperaemia [Not Recovered/Not Resolved]
  - Rhinorrhoea [Recovered/Resolved]
  - Vision blurred [Not Recovered/Not Resolved]
